FAERS Safety Report 6263134-5 (Version None)
Quarter: 2009Q3

REPORT INFORMATION
  Report Type: 
  Country: None (occurrence: None)
  Receive Date: 20090708
  Receipt Date: 20090708
  Transmission Date: 20100115
  Serious: Yes (Other)
  Sender: FDA-Public Use
  Company Number: None

PATIENT
  Sex: Female
  Weight: 51.7101 kg

DRUGS (2)
  1. LEVAQUIN [Suspect]
     Indication: SINUSITIS
     Dosage: 1 X DAY
  2. LEVAQUIN [Suspect]
     Indication: SINUSITIS
     Dosage: 1 X DAY

REACTIONS (2)
  - ARTHRITIS [None]
  - PAIN IN EXTREMITY [None]
